FAERS Safety Report 6318725-X (Version None)
Quarter: 2009Q3

REPORT INFORMATION
  Report Type: 
  Country: None (occurrence: None)
  Receive Date: 20090821
  Receipt Date: 20090814
  Transmission Date: 20100115
  Serious: Yes (Hospitalization)
  Sender: FDA-Public Use
  Company Number: US-GENENTECH-282627

PATIENT
  Age: 54 Year
  Sex: Female
  Weight: 54 kg

DRUGS (4)
  1. BLINDED BEVACIZUMAB [Suspect]
     Indication: FALLOPIAN TUBE CANCER
     Dosage: 15 MG/KG, Q3W STARTING WITH CYCLE 2 X 5 CYCLES
     Route: 042
     Dates: start: 20081208
  2. BLINDED PLACEBO [Suspect]
     Indication: FALLOPIAN TUBE CANCER
     Dosage: 15 MG/KG, Q3W STARTING WITH CYCLE 2 X 5 CYCLES
     Route: 042
     Dates: start: 20081208
  3. PACLITAXEL [Concomitant]
     Indication: FALLOPIAN TUBE CANCER
     Dosage: 175 MG/M2, UNK
     Route: 042
     Dates: start: 20081208
  4. CARBOPLATIN [Concomitant]
     Indication: FALLOPIAN TUBE CANCER
     Dosage: 6 AUC, UNK
     Route: 042
     Dates: start: 20081208

REACTIONS (5)
  - BLADDER PAIN [None]
  - HAEMOGLOBIN [None]
  - HYDRONEPHROSIS [None]
  - RENAL HAEMORRHAGE [None]
  - VOMITING [None]
